FAERS Safety Report 20182880 (Version 1)
Quarter: 2021Q4

REPORT INFORMATION
  Report Type: Spontaneous
  Country: US (occurrence: None)
  Receive Date: 20211214
  Receipt Date: 20211214
  Transmission Date: 20220303
  Serious: No
  Sender: FDA-Public Use
  Company Number: None

PATIENT
  Age: 80 Year
  Sex: Female

DRUGS (1)
  1. CHOLESTYRAMINE [Suspect]
     Active Substance: CHOLESTYRAMINE
     Dosage: FREQUENCY : TWICE A DAY;?
     Route: 048

REACTIONS (3)
  - Product use complaint [None]
  - Product solubility abnormal [None]
  - Product substitution issue [None]

NARRATIVE: CASE EVENT DATE: 20211213
